FAERS Safety Report 11343836 (Version 2)
Quarter: 2015Q3

REPORT INFORMATION
  Report Type: Spontaneous
  Country: US (occurrence: US)
  Receive Date: 20150806
  Receipt Date: 20150914
  Transmission Date: 20151125
  Serious: No
  Sender: FDA-Public Use
  Company Number: US-PFIZER INC-2015259338

PATIENT
  Age: 44 Year
  Sex: Female
  Weight: 59 kg

DRUGS (4)
  1. IBRANCE [Suspect]
     Active Substance: PALBOCICLIB
     Indication: BREAST CANCER
     Dosage: 125 MG, CYCLIC, FOR 21 DAYS
     Dates: start: 20150604
  2. LETROZOLE. [Concomitant]
     Active Substance: LETROZOLE
     Indication: MENOPAUSE
     Dosage: 2.5 MG, 1X/DAY
  3. LETROZOLE. [Concomitant]
     Active Substance: LETROZOLE
     Dosage: UNK
  4. LUPRON [Concomitant]
     Active Substance: LEUPROLIDE ACETATE
     Indication: MENOPAUSE
     Dosage: UNK, MONTHLY

REACTIONS (1)
  - White blood cell count decreased [Not Recovered/Not Resolved]
